FAERS Safety Report 16819263 (Version 2)
Quarter: 2019Q3

REPORT INFORMATION
  Report Type: Spontaneous
  Country: MT (occurrence: MT)
  Receive Date: 20190917
  Receipt Date: 20190923
  Transmission Date: 20191005
  Serious: Yes (Hospitalization, Other)
  Sender: FDA-Public Use
  Company Number: MT-MYLANLABS-2019M1086572

PATIENT
  Age: 80 Year
  Sex: Female

DRUGS (5)
  1. AMOXICILLIN                        /00249602/ [Interacting]
     Active Substance: AMOXICILLIN
     Indication: HELICOBACTER INFECTION
     Dosage: 1 GRAM, BID
  2. WARFARIN                           /00014802/ [Suspect]
     Active Substance: WARFARIN
     Indication: HEART RATE ABNORMAL
     Dosage: UNK
  3. CLARITHROMYCIN. [Suspect]
     Active Substance: CLARITHROMYCIN
     Indication: HELICOBACTER INFECTION
     Dosage: 500 MILLIGRAM, BID
  4. OMEPRAZOLE. [Interacting]
     Active Substance: OMEPRAZOLE
     Indication: HELICOBACTER INFECTION
     Dosage: 20 MILLIGRAM, BID
  5. DIGOXIN. [Interacting]
     Active Substance: DIGOXIN
     Indication: HEART RATE ABNORMAL
     Dosage: 0.13 MILLIGRAM, QD,0.125 MG, 1D

REACTIONS (19)
  - Electrocardiogram abnormal [Unknown]
  - Nausea [Unknown]
  - Bradycardia [Unknown]
  - Electrocardiogram ST segment depression [Unknown]
  - Cardioactive drug level increased [Unknown]
  - Toxicity to various agents [Recovered/Resolved]
  - Hyperhidrosis [Unknown]
  - Dizziness [Unknown]
  - Drug interaction [Unknown]
  - Hyperkalaemia [Unknown]
  - Acute kidney injury [Unknown]
  - Abdominal tenderness [Unknown]
  - Epigastric discomfort [Unknown]
  - Ventricular tachycardia [Unknown]
  - Vision blurred [Unknown]
  - Toxicity to various agents [Unknown]
  - Bradyarrhythmia [Unknown]
  - Supraventricular tachycardia [Unknown]
  - Blood creatinine increased [Unknown]
